FAERS Safety Report 9654589 (Version 1)
Quarter: 2013Q4

REPORT INFORMATION
  Report Type: Spontaneous
  Country: US (occurrence: US)
  Receive Date: 20131029
  Receipt Date: 20131029
  Transmission Date: 20140711
  Serious: No
  Sender: FDA-Public Use
  Company Number: US-BIOGENIDEC-2013BI085186

PATIENT
  Age: 55 Year
  Sex: Female
  Weight: 70 kg

DRUGS (5)
  1. TECFIDERA [Suspect]
     Indication: MULTIPLE SCLEROSIS
     Route: 048
     Dates: start: 201307
  2. TECFIDERA [Suspect]
     Indication: MULTIPLE SCLEROSIS
     Route: 048
     Dates: end: 201308
  3. VITAMIN D [Concomitant]
  4. ATIVAN [Concomitant]
  5. NEURONTIN [Concomitant]

REACTIONS (3)
  - Abdominal pain [Recovered/Resolved]
  - Abdominal pain upper [Unknown]
  - Burning sensation [Recovered/Resolved]
